FAERS Safety Report 18511791 (Version 35)
Quarter: 2021Q2

REPORT INFORMATION
  Report Type: Spontaneous
  Country: CZ (occurrence: CZ)
  Receive Date: 20201117
  Receipt Date: 20210630
  Transmission Date: 20210717
  Serious: Yes (Hospitalization, Other)
  Sender: FDA-Public Use
  Company Number: CZ-PFIZER INC-2020450680

PATIENT
  Age: 86 Year
  Sex: Female

DRUGS (63)
  1. PREGABALIN. [Suspect]
     Active Substance: PREGABALIN
     Indication: POST HERPETIC NEURALGIA
     Dosage: UNK
     Route: 065
  2. DUROGESIC [Interacting]
     Active Substance: FENTANYL
     Indication: PAIN
     Dosage: UNK/DOSE REDUCED TO ONE HALF
     Route: 065
  3. AGEN [Interacting]
     Active Substance: AMLODIPINE BESYLATE
     Indication: HYPERTENSION
     Dosage: 5 MILLIGRAM, QD
     Route: 048
  4. CALCICHEW D3 [Interacting]
     Active Substance: CALCIUM\CHOLECALCIFEROL
     Indication: CALCIUM DEFICIENCY
     Dosage: UNK UNK, QD
     Route: 048
  5. STILNOX [Interacting]
     Active Substance: ZOLPIDEM TARTRATE
     Indication: DRUG ABUSE
     Dosage: OVERUSED
     Route: 065
  6. CARDILAN [NICOFURANOSE] [Interacting]
     Active Substance: NICOFURANOSE
     Indication: ENCEPHALOPATHY
     Dosage: UNK UNK, QD
     Route: 048
  7. CARDILAN [MAGNESIUM ASPARTATE;POTASSIUM ASPARTATE] [Suspect]
     Active Substance: MAGNESIUM ASPARTATE\POTASSIUM ASPARTATE
     Dosage: 1 DF, 1X/DAY
     Route: 048
  8. MELOXICAM. [Suspect]
     Active Substance: MELOXICAM
     Indication: PAIN
     Dosage: UNK
     Route: 065
  9. METAMIZOLE [Interacting]
     Active Substance: METAMIZOLE
     Indication: NEURALGIA
     Dosage: 500 MILLIGRAM, QD
     Route: 048
     Dates: start: 2015
  10. AMIODARONE [Suspect]
     Active Substance: AMIODARONE
     Dosage: UNK
     Route: 065
  11. ROSUVASTATIN. [Suspect]
     Active Substance: ROSUVASTATIN
     Dosage: UNK
     Route: 065
  12. POTASSIUM ASPARTATE [Interacting]
     Active Substance: POTASSIUM ASPARTATE
     Dosage: UNK
     Route: 065
  13. NOVALGIN [CAFFEINE;PARACETAMOL;PROPYPHENAZONE] [Interacting]
     Active Substance: ACETAMINOPHEN\CAFFEINE\PROPYPHENAZONE
     Indication: HYPERTENSION
     Dosage: 500 MILLIGRAM, BID
     Route: 065
  14. ROSUCARD [Interacting]
     Active Substance: ROSUVASTATIN CALCIUM
     Dosage: 20 MILLIGRAM, QD
     Route: 048
  15. HYPNOGEN [Suspect]
     Active Substance: ZOLPIDEM TARTRATE
     Indication: DRUG ABUSE
     Dosage: UNK
     Route: 065
  16. IBALGIN [Suspect]
     Active Substance: IBUPROFEN
     Indication: PAIN
     Dosage: UNK
     Route: 065
  17. BETALOC ZOK [Interacting]
     Active Substance: METOPROLOL SUCCINATE
     Indication: HYPERTENSION
     Dosage: 25 MILLIGRAM, QD
     Route: 048
  18. OMEPRAZOLE. [Interacting]
     Active Substance: OMEPRAZOLE
     Dosage: UNK
     Route: 065
  19. METHOTREXATE SODIUM. [Interacting]
     Active Substance: METHOTREXATE SODIUM
     Indication: RHEUMATOID ARTHRITIS
     Dosage: 10 MILLIGRAM, 1/WEEK
     Route: 065
     Dates: start: 2010
  20. AMLODIPINE BESILATE [Suspect]
     Active Substance: AMLODIPINE BESYLATE
     Indication: HYPERTENSION
     Dosage: 5 MG
     Route: 048
  21. CONDROSULF [Interacting]
     Active Substance: SODIUM CHONDROITIN SULFATE
     Indication: RHEUMATOID ARTHRITIS
     Dosage: 800 MG, 1X/DAY/800 MILLIGRAM, IN THE EVENING
     Route: 048
  22. BETALOC [METOPROLOL TARTRATE] [Interacting]
     Active Substance: METOPROLOL TARTRATE
     Dosage: 25 MILLIGRAM, QD
     Route: 065
  23. TEZEO HCT [Suspect]
     Active Substance: HYDROCHLOROTHIAZIDE\TELMISARTAN
     Dosage: 80 MG/12.5 MG, ONE DOSAGE FORM DAILY
     Route: 048
  24. FENTANYL/FENTANYL CITRATE [Suspect]
     Active Substance: FENTANYL
     Dosage: UNK
     Route: 065
  25. MELOXICAM. [Suspect]
     Active Substance: MELOXICAM
     Route: 065
  26. RAMIPRIL. [Interacting]
     Active Substance: RAMIPRIL
     Dosage: UNK
     Route: 065
  27. LEVOTHYROXINE. [Suspect]
     Active Substance: LEVOTHYROXINE
     Dosage: UNK
     Route: 065
  28. CONTROLOC [Suspect]
     Active Substance: PANTOPRAZOLE SODIUM
     Indication: NAUSEA
     Dosage: 20 MILLIGRAM, QD
     Route: 048
  29. DONEPEZIL HCL [Suspect]
     Active Substance: DONEPEZIL HYDROCHLORIDE
     Dosage: UNK
     Route: 065
  30. PANADOL [Interacting]
     Active Substance: ACETAMINOPHEN
     Indication: PAIN
     Dosage: 750 MG DAILY (1.5 TABLETS 3?4 TIMES A DAY)
     Route: 065
  31. ORAMELLOX [Interacting]
     Active Substance: MELOXICAM
     Indication: POST HERPETIC NEURALGIA
     Dosage: 15 MILLIGRAM, TAKEN APPROXIMATELY 3 TIMES PER WEEK
     Route: 048
  32. OXAZEPAM. [Interacting]
     Active Substance: OXAZEPAM
     Indication: DRUG ABUSE
     Dosage: UNK/OVERUSED
     Route: 048
  33. METAMIZOLE [Interacting]
     Active Substance: METAMIZOLE
     Indication: POST HERPETIC NEURALGIA
     Dosage: UNK
     Route: 065
  34. ELIQUIS [Interacting]
     Active Substance: APIXABAN
     Indication: ANTICOAGULANT THERAPY
     Dosage: 5 MILLIGRAM, BID
     Route: 048
  35. CORDARONE [Interacting]
     Active Substance: AMIODARONE HYDROCHLORIDE
     Indication: ATRIAL FIBRILLATION
     Dosage: 200 MILLIGRAM, QD
     Route: 048
  36. GUTTALAX [SODIUM PICOSULFATE] [Interacting]
     Active Substance: SODIUM PICOSULFATE
     Indication: CONSTIPATION
     Dosage: 1 DOSAGE FORM (1DF=10?20 GUTTES)/10 TO 20 GTT IN THE EVENING
     Route: 065
  37. DUROGESIC [Interacting]
     Active Substance: FENTANYL
     Indication: POST HERPETIC NEURALGIA
     Dosage: 25 MICROGRAM, Q72H
     Route: 062
     Dates: start: 2015
  38. TEZEO [Interacting]
     Active Substance: TELMISARTAN
     Indication: HYPERTENSION
     Dosage: 1 DOSAGE FORM (1DF=80/12.5 MG)
     Route: 048
  39. TEZEO [Interacting]
     Active Substance: TELMISARTAN
     Dosage: UNK UNK, QD
     Route: 048
  40. STILNOX [Interacting]
     Active Substance: ZOLPIDEM TARTRATE
     Dosage: OVERUSED
     Route: 065
  41. TELMISARTAN. [Suspect]
     Active Substance: TELMISARTAN
     Dosage: UNK
     Route: 065
  42. CALCIUM/VITAMIN D3 [Suspect]
     Active Substance: CALCIUM\CHOLECALCIFEROL
     Dosage: UNK
     Route: 065
  43. POTASSIUM ASPARTATE [Interacting]
     Active Substance: POTASSIUM ASPARTATE
     Route: 065
  44. METHOTREXATE SODIUM. [Interacting]
     Active Substance: METHOTREXATE SODIUM
     Indication: RHEUMATOID ARTHRITIS
  45. ALPRAZOLAM. [Interacting]
     Active Substance: ALPRAZOLAM
     Dosage: UNK
     Route: 065
  46. ACIDUM FOLICUM [Interacting]
     Active Substance: FOLIC ACID
     Dosage: UNK, QWK
     Route: 048
  47. PREDNISONE. [Interacting]
     Active Substance: PREDNISONE
     Indication: STEROID THERAPY
     Dosage: 5 MILLIGRAM, QD
     Route: 048
  48. ORAMELLOX [Interacting]
     Active Substance: MELOXICAM
     Indication: PAIN
     Dosage: UNK UNK, 1/WEEK
     Route: 048
     Dates: start: 2015
  49. NOVALGIN (METAMIZOLE SODIUM) [Suspect]
     Active Substance: METAMIZOLE SODIUM
     Indication: HYPERTENSION
  50. EUTHYROX [Interacting]
     Active Substance: LEVOTHYROXINE SODIUM
     Indication: AUTOIMMUNE THYROIDITIS
     Dosage: 100 MICROGRAM, QD
     Route: 065
  51. NOVALGIN (METAMIZOLE SODIUM) [Suspect]
     Active Substance: METAMIZOLE SODIUM
     Indication: POST HERPETIC NEURALGIA
     Dosage: 500 MG, 2X/DAY
     Route: 065
  52. GUTTALAX [BISACODYL] [Interacting]
     Active Substance: BISACODYL
     Indication: CONSTIPATION
     Dosage: 10?20 GTT IN THE EVENING
     Route: 065
  53. CAPTOPRIL. [Interacting]
     Active Substance: CAPTOPRIL
     Indication: HYPERTENSION
     Dosage: UNK
     Route: 065
  54. GUAJACURAN [Interacting]
     Active Substance: GUAIFENESIN
     Dosage: UNK
     Route: 065
  55. SODIUM PICOSULFATE [Suspect]
     Active Substance: SODIUM PICOSULFATE
     Dosage: UNK
     Route: 065
  56. METOPROLOL. [Suspect]
     Active Substance: METOPROLOL
     Dosage: UNK
     Route: 065
  57. PARACETAMOL [Suspect]
     Active Substance: ACETAMINOPHEN
     Indication: PAIN
     Dosage: UNK
     Route: 065
  58. NOVALGIN [CAFFEINE;PARACETAMOL;PROPYPHENAZONE] [Interacting]
     Active Substance: ACETAMINOPHEN\CAFFEINE\PROPYPHENAZONE
     Dosage: 500 MILLIGRAM, Q12H
     Route: 065
  59. TRAMADOL. [Suspect]
     Active Substance: TRAMADOL
     Dosage: OVERUSED
     Route: 048
  60. PREDNISON LECIVA [Suspect]
     Active Substance: PREDNISONE
     Dosage: UNK
     Route: 065
  61. TRAZODONE [Interacting]
     Active Substance: TRAZODONE HYDROCHLORIDE
     Dosage: UNK
     Route: 065
  62. PANTOPRAZOLE [Suspect]
     Active Substance: PANTOPRAZOLE
     Dosage: UNK
     Route: 065
  63. CHONDROITIN SULFATE [Suspect]
     Active Substance: CHONDROITIN SULFATE (BOVINE)
     Dosage: UNK
     Route: 065

REACTIONS (43)
  - Listless [Recovering/Resolving]
  - Hypoacusis [Recovered/Resolved]
  - General physical health deterioration [Recovering/Resolving]
  - Condition aggravated [Recovered/Resolved]
  - Bedridden [Recovered/Resolved]
  - Anxiety [Recovered/Resolved]
  - Hypokalaemia [Recovered/Resolved]
  - Pelvic fracture [Recovered/Resolved]
  - Restlessness [Recovered/Resolved]
  - Contusion [Recovered/Resolved]
  - Confusional state [Recovered/Resolved]
  - Head discomfort [Recovered/Resolved]
  - Fall [Recovering/Resolving]
  - Fracture [Recovered/Resolved]
  - Overdose [Recovered/Resolved]
  - Immobile [Recovered/Resolved]
  - Incorrect dose administered [Unknown]
  - Mood swings [Recovered/Resolved]
  - Sleep disorder [Recovering/Resolving]
  - Urinary retention [Recovered/Resolved]
  - Atrial fibrillation [Recovered/Resolved]
  - Drug interaction [Recovered/Resolved]
  - Discomfort [Recovered/Resolved]
  - Reduced facial expression [Recovered/Resolved]
  - Oxygen saturation decreased [Recovered/Resolved]
  - Liver function test increased [Recovered/Resolved]
  - Apathy [Recovered/Resolved]
  - Nausea [Recovered/Resolved]
  - Encephalopathy [Recovering/Resolving]
  - Loss of personal independence in daily activities [Recovered/Resolved]
  - Poor quality sleep [Recovered/Resolved]
  - Prescription drug used without a prescription [Unknown]
  - Delirium [Recovered/Resolved]
  - Hypertension [Recovering/Resolving]
  - Dehydration [Recovered/Resolved]
  - Affect lability [Recovered/Resolved]
  - Hyponatraemia [Recovered/Resolved]
  - Vertigo [Recovered/Resolved]
  - Cognitive disorder [Recovered/Resolved]
  - Dizziness [Recovered/Resolved]
  - Medication error [Recovered/Resolved]
  - Mobility decreased [Recovered/Resolved]
  - Foreign body [Recovered/Resolved]

NARRATIVE: CASE EVENT DATE: 2018
